FAERS Safety Report 5389001-7 (Version None)
Quarter: 2007Q3

REPORT INFORMATION
  Report Type: 
  Country: None (occurrence: None)
  Receive Date: 20070703
  Receipt Date: 20070403
  Transmission Date: 20080115
  Serious: No
  Sender: FDA-Public Use
  Company Number: 2007PV032777

PATIENT
  Age: 50 Year
  Sex: Female

DRUGS (5)
  1. SYMLIN [Suspect]
     Indication: TYPE 2 DIABETES MELLITUS
     Dosage: 60 MCG;TID;SC
     Route: 058
     Dates: start: 20060901
  2. HUMULIN N [Concomitant]
  3. HUMALOG [Concomitant]
  4. ACTOS [Concomitant]
  5. METFORMIN HCL [Concomitant]

REACTIONS (2)
  - ABDOMINAL SYMPTOM [None]
  - EARLY SATIETY [None]
